FAERS Safety Report 13428334 (Version 2)
Quarter: 2017Q2

REPORT INFORMATION
  Report Type: Spontaneous
  Country: DK (occurrence: DK)
  Receive Date: 20170411
  Receipt Date: 20170420
  Transmission Date: 20170830
  Serious: Yes (Hospitalization)
  Sender: FDA-Public Use
  Company Number: DK-PFIZER INC-2017156226

PATIENT
  Age: 44 Year
  Sex: Female

DRUGS (4)
  1. FOLIMET [Concomitant]
     Indication: VITAMIN SUPPLEMENTATION
     Dosage: UNK
  2. METHOTREXATE SODIUM. [Concomitant]
     Active Substance: METHOTREXATE SODIUM
     Indication: RHEUMATOID ARTHRITIS
     Dosage: UNK
  3. REMSIMA [Suspect]
     Active Substance: INFLIXIMAB
     Indication: RHEUMATOID ARTHRITIS
     Dosage: 180 MG, UNK
     Route: 042
     Dates: start: 20170111, end: 20170111
  4. REMSIMA [Suspect]
     Active Substance: INFLIXIMAB
     Dosage: 180 MG, UNK
     Route: 042
     Dates: start: 201701, end: 201701

REACTIONS (14)
  - Urticaria [Recovering/Resolving]
  - Dysphagia [Recovered/Resolved]
  - Serum sickness [Recovered/Resolved]
  - Fatigue [Recovered/Resolved]
  - Malaise [Recovering/Resolving]
  - Myalgia [Recovered/Resolved]
  - Pharyngeal oedema [Recovered/Resolved]
  - Drug hypersensitivity [Recovered/Resolved]
  - Headache [Recovered/Resolved]
  - Pyrexia [Recovered/Resolved]
  - Throat irritation [Recovered/Resolved]
  - Pruritus [Recovering/Resolving]
  - Arthralgia [Recovered/Resolved]
  - Upper respiratory tract congestion [Unknown]

NARRATIVE: CASE EVENT DATE: 20170118
